FAERS Safety Report 17705456 (Version 1)
Quarter: 2020Q2

REPORT INFORMATION
  Report Type: Report from Study
  Country: CA (occurrence: CA)
  Receive Date: 20200424
  Receipt Date: 20200424
  Transmission Date: 20200714
  Serious: Yes (Other)
  Sender: FDA-Public Use
  Company Number: CA-JNJFOC-20200327943

PATIENT
  Sex: Male

DRUGS (1)
  1. STELARA [Suspect]
     Active Substance: USTEKINUMAB
     Indication: PSORIASIS
     Dosage: ON 20-APR-2020, THE PATIENT RECEIVED 17TH INFUSION.
     Route: 058
     Dates: start: 20151019

REACTIONS (4)
  - Product use issue [Unknown]
  - Thinking abnormal [Unknown]
  - Prostate cancer [Recovering/Resolving]
  - Off label use [Unknown]

NARRATIVE: CASE EVENT DATE: 2016
